FAERS Safety Report 16580678 (Version 1)
Quarter: 2019Q3

REPORT INFORMATION
  Report Type: Spontaneous
  Country: US (occurrence: US)
  Receive Date: 20190716
  Receipt Date: 20190716
  Transmission Date: 20191004
  Serious: No
  Sender: FDA-Public Use
  Company Number: US-ELI_LILLY_AND_COMPANY-US201907002766

PATIENT
  Sex: Female

DRUGS (4)
  1. EMGALITY [Suspect]
     Active Substance: GALCANEZUMAB-GNLM
     Indication: MIGRAINE
     Dosage: UNK UNK, MONTHLY (1/M)
     Route: 065
     Dates: start: 201902
  2. METAXALONE. [Concomitant]
     Active Substance: METAXALONE
     Indication: MIGRAINE
     Dosage: UNK, PRN
     Route: 065
  3. FIORICET [Concomitant]
     Active Substance: ACETAMINOPHEN\BUTALBITAL\CAFFEINE
     Indication: MIGRAINE
     Dosage: UNK, PRN
     Route: 065
  4. TYLENOL [Concomitant]
     Active Substance: ACETAMINOPHEN
     Indication: MIGRAINE
     Dosage: UNK, PRN
     Route: 065

REACTIONS (1)
  - Therapeutic response shortened [Unknown]
